FAERS Safety Report 14427543 (Version 2)
Quarter: 2019Q1

REPORT INFORMATION
  Report Type: Spontaneous
  Country: US (occurrence: US)
  Receive Date: 20180123
  Receipt Date: 20190303
  Transmission Date: 20190417
  Serious: No
  Sender: FDA-Public Use
  Company Number: US-IMPAX LABORATORIES, INC-2018-IPXL-00027

PATIENT
  Age: 82 Year
  Sex: Male
  Weight: 102 kg

DRUGS (6)
  1. RYTARY [Suspect]
     Active Substance: CARBIDOPA\LEVODOPA
     Dosage: 23.75/95 MG, 1 CAPSULE TID AND 48.75 /195 MG, 1 CAPSULE TID
     Route: 048
  2. LISINOPRIL. [Concomitant]
     Active Substance: LISINOPRIL
     Indication: BLOOD PRESSURE ABNORMAL
     Dosage: 20 MG, UNK
     Route: 065
  3. DILTIAZEM. [Concomitant]
     Active Substance: DILTIAZEM
     Indication: BLOOD PRESSURE ABNORMAL
     Dosage: 360 MG, UNK
     Route: 065
  4. MOBIC [Concomitant]
     Active Substance: MELOXICAM
     Indication: ARTHRITIS
     Dosage: 15 MG, UNK
     Route: 065
  5. RYTARY [Suspect]
     Active Substance: CARBIDOPA\LEVODOPA
     Dosage: 61.25 MG/ 245 MG; 1 CAPSULE, 3 /DAY
     Route: 048
  6. RYTARY [Suspect]
     Active Substance: CARBIDOPA\LEVODOPA
     Indication: PARKINSON^S DISEASE
     Dosage: 61.25 MG/ 245 MG 1 CAPSULE, 3 /DAY
     Route: 048
     Dates: start: 20170412

REACTIONS (8)
  - Muscle twitching [Recovering/Resolving]
  - Gait disturbance [Unknown]
  - Balance disorder [Unknown]
  - Drug effect variable [Unknown]
  - Pain in extremity [Unknown]
  - Insomnia [Unknown]
  - Muscular weakness [Unknown]
  - Nervousness [Unknown]

NARRATIVE: CASE EVENT DATE: 20170524
